FAERS Safety Report 4807270-6 (Version None)
Quarter: 2005Q4

REPORT INFORMATION
  Report Type: 
  Country: None (occurrence: None)
  Receive Date: 20051020
  Receipt Date: 20051020
  Transmission Date: 20060501
  Serious: No
  Sender: FDA-Public Use
  Company Number: None

PATIENT
  Age: 16 Year
  Sex: Female
  Weight: 97.0698 kg

DRUGS (2)
  1. OXCARBAZEPINE [Suspect]
     Indication: MOOD SWINGS
     Dosage: 300 MG  PO  BID  (8 DOSES)
     Route: 048
  2. ISONIAZID [Concomitant]

REACTIONS (6)
  - EYELID OEDEMA [None]
  - OEDEMA PERIPHERAL [None]
  - RASH [None]
  - RASH PAPULAR [None]
  - RASH PRURITIC [None]
  - SWELLING [None]
